FAERS Safety Report 6003539-0 (Version None)
Quarter: 2008Q4

REPORT INFORMATION
  Report Type: 
  Country: None (occurrence: None)
  Receive Date: 20081212
  Receipt Date: 20081212
  Transmission Date: 20090506
  Serious: Yes (Other)
  Sender: FDA-Public Use
  Company Number: None

PATIENT
  Sex: Male
  Weight: 81.6475 kg

DRUGS (2)
  1. DOXYCYCLINE [Suspect]
     Indication: SEBORRHOEIC DERMATITIS
     Dosage: 100 MG ONCE DAILY PO
     Route: 048
     Dates: start: 20081010, end: 20081210
  2. CLINDAMYCIN HCL [Suspect]

REACTIONS (2)
  - DRUG DISPENSING ERROR [None]
  - MEDICATION ERROR [None]
